FAERS Safety Report 9859194 (Version 1)
Quarter: 2014Q1

REPORT INFORMATION
  Report Type: Spontaneous
  Country: US (occurrence: None)
  Receive Date: 20140129
  Receipt Date: 20140129
  Transmission Date: 20141002
  Serious: Yes (Life-Threatening)
  Sender: FDA-Public Use
  Company Number: 1713747-2014-99905

PATIENT
  Age: 59 Year
  Sex: Female

DRUGS (1)
  1. STAY SAFE [Suspect]
     Indication: RENAL FAILURE

REACTIONS (1)
  - Peritonitis [None]
